FAERS Safety Report 7632080-4 (Version None)
Quarter: 2011Q3

REPORT INFORMATION
  Report Type: 
  Country: None (occurrence: None)
  Receive Date: 20110725
  Receipt Date: 20110705
  Transmission Date: 20111222
  Serious: No
  Sender: FDA-Public Use
  Company Number: US-B.I. PHARMACEUTICALS,INC./RIDGEFIELD-2011-BP-16943BP

PATIENT
  Age: 65 Year
  Sex: Female

DRUGS (6)
  1. SPIRIVA [Suspect]
     Indication: CHRONIC OBSTRUCTIVE PULMONARY DISEASE
     Dosage: 18 MCG
     Route: 055
     Dates: start: 20110501
  2. NEXIUM [Concomitant]
     Indication: GASTROOESOPHAGEAL REFLUX DISEASE
     Dates: start: 19950101
  3. CYMBALTA [Concomitant]
     Indication: SPINAL COLUMN STENOSIS
     Dates: start: 19950101
  4. LANTUS [Concomitant]
     Indication: DIABETES MELLITUS
     Dates: start: 19900101
  5. NOVOLOG [Concomitant]
     Indication: DIABETES MELLITUS
     Dates: start: 19900101
  6. TRAMADOL HCL [Concomitant]
     Indication: SPINAL COLUMN STENOSIS
     Dates: start: 19950101

REACTIONS (1)
  - MUSCLE SPASMS [None]
